FAERS Safety Report 6375596-3 (Version None)
Quarter: 2009Q3

REPORT INFORMATION
  Report Type: 
  Country: None (occurrence: None)
  Receive Date: 20090924
  Receipt Date: 20090914
  Transmission Date: 20100115
  Serious: Yes (Hospitalization)
  Sender: FDA-Public Use
  Company Number: JP-ABBOTT-09P-087-0597293-00

PATIENT
  Sex: Male

DRUGS (5)
  1. KALETRA [Suspect]
     Indication: HIV INFECTION
     Route: 048
     Dates: start: 20070401
  2. EPIVIR [Concomitant]
     Indication: HIV INFECTION
     Route: 048
     Dates: start: 20070401
  3. ZIAGEN [Concomitant]
     Indication: HIV INFECTION
     Route: 048
     Dates: start: 20070401
  4. CARVEDILOL [Concomitant]
     Indication: VENTRICULAR TACHYCARDIA
     Dates: start: 20070401
  5. SOTALOL HCL [Concomitant]
     Indication: VENTRICULAR TACHYCARDIA
     Dates: start: 20070401

REACTIONS (4)
  - DECREASED APPETITE [None]
  - DUODENAL ULCER [None]
  - FAECES DISCOLOURED [None]
  - VOMITING [None]
